FAERS Safety Report 5193301-3 (Version None)
Quarter: 2006Q4

REPORT INFORMATION
  Report Type: 
  Country: None (occurrence: None)
  Receive Date: 20061228
  Receipt Date: 20060905
  Transmission Date: 20070319
  Serious: No
  Sender: FDA-Public Use
  Company Number: US-GLAXOSMITHKLINE-A0619084A

PATIENT
  Age: 71 Year
  Sex: Male

DRUGS (16)
  1. AVODART [Suspect]
     Indication: BENIGN PROSTATIC HYPERPLASIA
     Dosage: .5MG PER DAY
     Route: 048
     Dates: start: 20060825, end: 20060904
  2. CLONIDINE [Concomitant]
  3. HYDRALAZINE HCL [Concomitant]
  4. SODIUM BICARBONATE [Concomitant]
  5. PENTOXIFYLLINE [Concomitant]
  6. FUROSEMIDE [Concomitant]
  7. COREG [Concomitant]
  8. COZAAR [Concomitant]
  9. DOXAZOSIN MESYLATE [Concomitant]
  10. LIPITOR [Concomitant]
  11. FLOMAX [Concomitant]
  12. PLAVIX [Concomitant]
  13. SPIRONOLACTONE [Concomitant]
  14. CALCITRIOL [Concomitant]
  15. ASPIRIN [Concomitant]
  16. UNKNOWN MEDICATION [Concomitant]

REACTIONS (2)
  - BLOOD GLUCOSE INCREASED [None]
  - DIZZINESS [None]
